FAERS Safety Report 4357415-X (Version None)
Quarter: 2004Q2

REPORT INFORMATION
  Report Type: 
  Country: None (occurrence: None)
  Receive Date: 20040510
  Receipt Date: 20040426
  Transmission Date: 20050107
  Serious: Yes (Hospitalization)
  Sender: FDA-Public Use
  Company Number: 2004AP02194

PATIENT
  Age: 74 Year
  Sex: Male
  Weight: 77 kg

DRUGS (4)
  1. IRESSA [Suspect]
     Indication: TONSIL CANCER
     Dosage: 250 MG DAILY PO
     Route: 048
     Dates: start: 20040319
  2. RADIOTHERAPY [Suspect]
     Indication: TONSIL CANCER
     Dosage: 2 GY (TOTAL FOR 1 WEEK 10 GY)
     Dates: start: 20040322
  3. MOTILIUM [Concomitant]
  4. VIOXX [Concomitant]

REACTIONS (1)
  - CHILLS [None]
